FAERS Safety Report 4274216-1 (Version None)
Quarter: 2004Q1

REPORT INFORMATION
  Report Type: 
  Country: None (occurrence: None)
  Receive Date: 20040115
  Receipt Date: 20040107
  Transmission Date: 20041129
  Serious: Yes (Hospitalization, Other)
  Sender: FDA-Public Use
  Company Number: 2003-09-0025

PATIENT
  Age: 26 Year
  Sex: Male

DRUGS (3)
  1. PEG-INTRON [Suspect]
     Indication: HEPATITIS C
     Dosage: 80 MCG
     Dates: start: 20030601, end: 20030701
  2. RIBAVIRIN [Suspect]
     Indication: HEPATITIS C
     Dosage: 800 MG
     Dates: start: 20030601, end: 20030825
  3. PEGYLATED INTERFERON ALFA-2A INJECTABLE SOLUTION [Suspect]
     Indication: HEPATITIS C
     Dates: start: 20030731, end: 20030825

REACTIONS (4)
  - DRUG INTERACTION [None]
  - EPISTAXIS [None]
  - HEPATIC FAILURE [None]
  - THROMBOCYTOPENIA [None]
